FAERS Safety Report 7325541-9 (Version None)
Quarter: 2011Q1

REPORT INFORMATION
  Report Type: 
  Country: None (occurrence: None)
  Receive Date: 20110302
  Receipt Date: 20110222
  Transmission Date: 20110831
  Serious: Yes (Other)
  Sender: FDA-Public Use
  Company Number: JP-SANOFI-AVENTIS-200511160JP

PATIENT
  Age: 40 Year
  Sex: Male
  Weight: 72 kg

DRUGS (5)
  1. FEXOFENADINE HCL [Suspect]
     Route: 048
     Dates: start: 20050330, end: 20050330
  2. BECLOMETASONE DIPROPIONATE [Concomitant]
     Indication: RHINITIS ALLERGIC
     Route: 045
     Dates: start: 20050321, end: 20050330
  3. LIVOSTIN [Concomitant]
     Indication: RHINITIS ALLERGIC
     Route: 047
     Dates: start: 20050309, end: 20050330
  4. CLARITIN [Suspect]
     Indication: RHINITIS ALLERGIC
     Route: 048
     Dates: start: 20050321, end: 20050330
  5. FEXOFENADINE HCL [Suspect]
     Indication: RHINITIS ALLERGIC
     Route: 048
     Dates: start: 20050309, end: 20050320

REACTIONS (3)
  - EPILEPSY [None]
  - CONVULSION [None]
  - LOSS OF CONSCIOUSNESS [None]
